FAERS Safety Report 13364145 (Version 2)
Quarter: 2017Q2

REPORT INFORMATION
  Report Type: Spontaneous
  Country: TR (occurrence: TR)
  Receive Date: 20170323
  Receipt Date: 20170405
  Transmission Date: 20170830
  Serious: No
  Sender: FDA-Public Use
  Company Number: TR-GILEAD-2017-0262979

PATIENT
  Age: 58 Year
  Sex: Male
  Weight: 50 kg

DRUGS (4)
  1. TIVICAY [Concomitant]
     Active Substance: DOLUTEGRAVIR SODIUM
     Indication: HIV TEST POSITIVE
     Dosage: UNK
     Dates: start: 20160421
  2. TRUVADA [Suspect]
     Active Substance: EMTRICITABINE\TENOFOVIR DISOPROXIL FUMARATE
     Indication: HIV TEST POSITIVE
     Dosage: UNK
     Route: 065
     Dates: start: 20160421
  3. AZITHROMYCIN ANHYDROUS. [Concomitant]
     Active Substance: AZITHROMYCIN ANHYDROUS
     Dosage: UNK
     Dates: start: 20160421
  4. COTRIMOXAZOLE [Concomitant]
     Active Substance: SULFAMETHOXAZOLE\TRIMETHOPRIM
     Dosage: UNK
     Dates: start: 20160421

REACTIONS (1)
  - Bone density decreased [Unknown]
